FAERS Safety Report 6140024-X (Version None)
Quarter: 2009Q1

REPORT INFORMATION
  Report Type: 
  Country: None (occurrence: None)
  Receive Date: 20090330
  Receipt Date: 20090330
  Transmission Date: 20090719
  Serious: Yes (Other)
  Sender: FDA-Public Use
  Company Number: None

PATIENT
  Sex: Male
  Weight: 81.36 kg

DRUGS (6)
  1. PERCOCET-5 [Suspect]
     Dosage: 5MG-325MG TABLET 1-2 TAB Q4-6H
     Route: 048
     Dates: start: 20090219, end: 20090330
  2. HYDROCHLOROTHIAZIDE [Concomitant]
  3. LISINOPRIL [Concomitant]
  4. OMEPRAZOLE [Concomitant]
  5. SIMVASTATIN [Concomitant]
  6. VIAGRA [Concomitant]

REACTIONS (2)
  - DYSPNOEA [None]
  - NAUSEA [None]
